FAERS Safety Report 8873605 (Version 1)
Quarter: 2012Q4

REPORT INFORMATION
  Report Type: 
  Country: US (occurrence: US)
  Receive Date: 20121023
  Receipt Date: 20121023
  Transmission Date: 20130627
  Serious: Yes (Other)
  Sender: FDA-Public Use
  Company Number: US-PFIZER INC-2012261920

PATIENT
  Age: 75 Year
  Sex: Female

DRUGS (1)
  1. DETROL [Suspect]
     Dosage: 4 mg, one in a.m., and another, by mistake at 9p.m.

REACTIONS (7)
  - Loss of consciousness [Unknown]
  - Fall [Recovering/Resolving]
  - Limb injury [Unknown]
  - Somnolence [Unknown]
  - Pain [Unknown]
  - Contusion [Unknown]
  - Mobility decreased [Unknown]
